FAERS Safety Report 24570693 (Version 3)
Quarter: 2025Q3

REPORT INFORMATION
  Report Type: Report from Study
  Country: CN (occurrence: CN)
  Receive Date: 20241031
  Receipt Date: 20250914
  Transmission Date: 20251021
  Serious: Yes (Life-Threatening, Other)
  Sender: BEIGENE
  Company Number: CN-ROCHE-3571677

PATIENT
  Age: 54 Year
  Weight: 72.5 kg

DRUGS (43)
  1. BRUKINSA [Suspect]
     Active Substance: ZANUBRUTINIB
     Indication: Diffuse large B-cell lymphoma
  2. BRUKINSA [Suspect]
     Active Substance: ZANUBRUTINIB
  3. DOXORUBICIN [Suspect]
     Active Substance: DOXORUBICIN
     Indication: Diffuse large B-cell lymphoma
  4. CYCLOPHOSPHAMIDE [Suspect]
     Active Substance: CYCLOPHOSPHAMIDE
     Indication: Diffuse large B-cell lymphoma
  5. POLATUZUMAB VEDOTIN [Suspect]
     Active Substance: POLATUZUMAB VEDOTIN
     Indication: Diffuse large B-cell lymphoma
  6. RITUXIMAB [Suspect]
     Active Substance: RITUXIMAB
     Indication: Diffuse large B-cell lymphoma
  7. ETOPOSIDE [Suspect]
     Active Substance: ETOPOSIDE
     Indication: Diffuse large B-cell lymphoma
  8. EPIRUBICIN [Suspect]
     Active Substance: EPIRUBICIN
     Indication: Diffuse large B-cell lymphoma
  9. SODIUM BICARBONATE [Concomitant]
     Active Substance: SODIUM BICARBONATE
  10. DOPAMINE [Concomitant]
     Active Substance: DOPAMINE HYDROCHLORIDE
  11. TERBINAFINE HYDROCHLORIDE [Concomitant]
     Active Substance: TERBINAFINE HYDROCHLORIDE
  12. ACYCLOVIR [Concomitant]
     Active Substance: ACYCLOVIR
  13. EUCALYPTOL [Concomitant]
     Active Substance: EUCALYPTOL
  14. ENOXAPARIN SODIUM [Concomitant]
     Active Substance: ENOXAPARIN SODIUM
  15. ESTAZOLAM [Concomitant]
     Active Substance: ESTAZOLAM
  16. CHLORHEXIDINE [Concomitant]
     Active Substance: CHLORHEXIDINE
  17. CETIRIZINE HYDROCHLORIDE [Concomitant]
     Active Substance: CETIRIZINE HYDROCHLORIDE
  18. IBUPROFEN [Concomitant]
     Active Substance: IBUPROFEN
  19. NOREPINEPHRINE BITARTRATE [Concomitant]
     Active Substance: NOREPINEPHRINE BITARTRATE
  20. MEROPENEM [Concomitant]
     Active Substance: MEROPENEM
  21. PALONOSETRON HYDROCHLORIDE [Concomitant]
     Active Substance: PALONOSETRON HYDROCHLORIDE
  22. ACETAMINOPHEN [Concomitant]
     Active Substance: ACETAMINOPHEN
  23. DEXAMETHASONE SODIUM PHOSPHATE [Concomitant]
     Active Substance: DEXAMETHASONE SODIUM PHOSPHATE
  24. OMEPRAZOLE SODIUM [Concomitant]
     Active Substance: OMEPRAZOLE SODIUM
  25. PROMETHAZINE HYDROCHLORIDE [Concomitant]
     Active Substance: PROMETHAZINE HYDROCHLORIDE
  26. SULFAMETHOXAZOLE [Concomitant]
     Active Substance: SULFAMETHOXAZOLE
  27. GRANULOCYTE COLONY-STIMULATING FACTOR NOS [Concomitant]
     Active Substance: GRANULOCYTE COLONY-STIMULATING FACTOR NOS
  28. AMIKACIN SULFATE [Concomitant]
     Active Substance: AMIKACIN SULFATE
  29. GLUTATHIONE [Concomitant]
     Active Substance: GLUTATHIONE
  30. MUPIROCIN [Concomitant]
     Active Substance: MUPIROCIN
  31. VORICONAZOLE [Concomitant]
     Active Substance: VORICONAZOLE
  32. EUCALYPTUS [Concomitant]
     Active Substance: EUCALYPTUS GLOBULUS POLLEN\EUCALYPTUS GUM
  33. CEFTAZIDIME [Concomitant]
     Active Substance: CEFTAZIDIME
  34. FUROSEMIDE [Concomitant]
     Active Substance: FUROSEMIDE
  35. FENTANYL [Concomitant]
     Active Substance: FENTANYL
  36. METHYLPREDNISOLONE SODIUM SUCCINATE [Concomitant]
     Active Substance: METHYLPREDNISOLONE SODIUM SUCCINATE
  37. LACTULOSE [Concomitant]
     Active Substance: LACTULOSE
  38. TIGECYCLINE [Concomitant]
     Active Substance: TIGECYCLINE
  39. RIVAROXABAN [Concomitant]
     Active Substance: RIVAROXABAN
  40. FEBUXOSTAT [Concomitant]
     Active Substance: FEBUXOSTAT
  41. AMBROXOL HYDROCHLORIDE [Concomitant]
     Active Substance: AMBROXOL HYDROCHLORIDE
  42. LIMONENE, (+/-)- [Concomitant]
     Active Substance: LIMONENE, (+/-)-
  43. MOSAPRIDE CITRATE [Concomitant]
     Active Substance: MOSAPRIDE CITRATE

REACTIONS (28)
  - Myelosuppression [Unknown]
  - Drug-induced liver injury [Unknown]
  - Acute kidney injury [Unknown]
  - Myocardial injury [Unknown]
  - Bacterial sepsis [Not Recovered/Not Resolved]
  - Escherichia infection [Not Recovered/Not Resolved]
  - Anaemia [Not Recovered/Not Resolved]
  - Pneumonia [Not Recovered/Not Resolved]
  - Gamma-glutamyltransferase increased [Recovered/Resolved]
  - White blood cell count decreased [Recovered/Resolved]
  - Hypoalbuminaemia [Not Recovered/Not Resolved]
  - Blood alkaline phosphatase increased [Recovered/Resolved]
  - Neutrophil count decreased [Recovered/Resolved]
  - Effusion [Not Recovered/Not Resolved]
  - Aspartate aminotransferase increased [Recovered/Resolved]
  - Platelet count decreased [Not Recovered/Not Resolved]
  - Enterococcal infection [Not Recovered/Not Resolved]
  - Alanine aminotransferase increased [Recovered/Resolved]
  - Hypomagnesaemia [Unknown]
  - Hypochloraemia [Unknown]
  - Blood bilirubin increased [Unknown]
  - Hypokalaemia [Unknown]
  - Hypophosphataemia [Unknown]
  - Hyperuricaemia [Unknown]
  - Blood creatinine increased [Unknown]
  - Lymphocyte count increased [Unknown]
  - Hypocalcaemia [Unknown]
  - Off label use [Unknown]
